FAERS Safety Report 17722638 (Version 1)
Quarter: 2020Q2

REPORT INFORMATION
  Report Type: Spontaneous
  Country: CN (occurrence: CN)
  Receive Date: 20200429
  Receipt Date: 20200429
  Transmission Date: 20200714
  Serious: Yes (Death)
  Sender: FDA-Public Use
  Company Number: CN-TEIKOKU PHARMA USA, INC.-CN-2020TEI000076

PATIENT

DRUGS (3)
  1. DOCETAXEL INJECTION (NON-ALCOHOL FORMULA) [Suspect]
     Active Substance: DOCETAXEL
     Indication: OESOPHAGEAL SQUAMOUS CELL CARCINOMA RECURRENT
     Dosage: 25 MG/M2, WEEKLY, 5 OR 6 CYCLES ON DAYS 1, 8, 15, 22, 29 AND 36
     Route: 065
  2. CISPLATIN. [Suspect]
     Active Substance: CISPLATIN
     Indication: OESOPHAGEAL SQUAMOUS CELL CARCINOMA RECURRENT
     Dosage: 25 MG/M2, WEEKLY, 5 OR 6 CYCLES ON DAYS 1, 8, 15, 22, 29 AND 36
     Route: 065
  3. RADIOTHERAPY [Suspect]
     Active Substance: RADIATION THERAPY
     Indication: OESOPHAGEAL SQUAMOUS CELL CARCINOMA RECURRENT
     Dosage: SPECIFIC DOSE GIVEN CONCURRENTLY WITH DOCETAXEL AND CISPATIN
     Route: 065

REACTIONS (1)
  - Tracheo-oesophageal fistula [Fatal]
